FAERS Safety Report 14487358 (Version 2)
Quarter: 2018Q1

REPORT INFORMATION
  Report Type: Spontaneous
  Country: IL (occurrence: IL)
  Receive Date: 20180205
  Receipt Date: 20180214
  Transmission Date: 20180509
  Serious: Yes (Other)
  Sender: FDA-Public Use
  Company Number: IL-SA-2018SA019455

PATIENT
  Age: 33 Year
  Sex: Male

DRUGS (1)
  1. CLOMIFENE CITRATE [Suspect]
     Active Substance: CLOMIPHENE
     Indication: INFERTILITY MALE
     Route: 065

REACTIONS (3)
  - Nodule [Unknown]
  - Off label use [Unknown]
  - Seminoma [Unknown]
